FAERS Safety Report 5927992-3 (Version None)
Quarter: 2008Q4

REPORT INFORMATION
  Report Type: 
  Country: None (occurrence: None)
  Receive Date: 20081022
  Receipt Date: 20081022
  Transmission Date: 20090506
  Serious: Yes (Hospitalization)
  Sender: FDA-Public Use
  Company Number: None

PATIENT
  Age: 61 Year
  Sex: Male
  Weight: 80.2867 kg

DRUGS (3)
  1. GEMZAR [Suspect]
     Indication: SARCOMA
     Dosage: 290 CMG Q3 WEEKS IV
     Route: 042
     Dates: start: 20080702
  2. GEMZAR [Suspect]
     Indication: SOFT TISSUE DISORDER
     Dosage: 290 CMG Q3 WEEKS IV
     Route: 042
     Dates: start: 20080702
  3. AVASTIN [Suspect]
     Indication: SARCOMA
     Dosage: 400 MG Q3 WEEKS IV
     Route: 042
     Dates: start: 20080702

REACTIONS (3)
  - CONFUSIONAL STATE [None]
  - HYPOTENSION [None]
  - PNEUMONIA [None]
